FAERS Safety Report 23557042 (Version 2)
Quarter: 2025Q3

REPORT INFORMATION
  Report Type: Other
  Country: EU (occurrence: EU)
  Receive Date: 20240223
  Receipt Date: 20250703
  Transmission Date: 20251021
  Serious: Yes (Hospitalization)
  Sender: Steriscience PTE
  Company Number: None

PATIENT
  Age: 14 Year
  Sex: Female
  Weight: 67 kg

DRUGS (19)
  1. ONDANSETRON [Suspect]
     Active Substance: ONDANSETRON
     Indication: Vomiting
     Route: 042
     Dates: start: 20231230
  2. HYDROXYZINE [Suspect]
     Active Substance: HYDROXYZINE HYDROCHLORIDE
     Indication: Anxiety
     Route: 065
     Dates: start: 20240109
  3. MEROPENEM [Interacting]
     Active Substance: MEROPENEM
     Indication: Ureteritis
     Route: 042
     Dates: start: 20231231, end: 20240115
  4. ALIZAPRIDE HYDROCHLORIDE [Suspect]
     Active Substance: ALIZAPRIDE HYDROCHLORIDE
     Indication: Nausea
     Route: 065
     Dates: start: 20231230, end: 20240115
  5. PROBENECID [Interacting]
     Active Substance: PROBENECID
     Indication: Nephropathy toxic
     Route: 048
     Dates: start: 20240113, end: 20240126
  6. CIPROFLOXACIN [Interacting]
     Active Substance: CIPROFLOXACIN
     Indication: Ureteritis
     Route: 042
     Dates: start: 20240104, end: 20240114
  7. TRANEXAMIC ACID [Suspect]
     Active Substance: TRANEXAMIC ACID
     Indication: Haemorrhage
     Route: 048
     Dates: start: 20231230, end: 20240114
  8. NEFOPAM [Suspect]
     Active Substance: NEFOPAM
     Indication: Pain
     Route: 065
     Dates: start: 20240106, end: 20240114
  9. COLPRONE [Concomitant]
     Active Substance: MEDROGESTONE
     Indication: Product used for unknown indication
     Route: 065
     Dates: start: 20231230
  10. MORPHINE [Concomitant]
     Active Substance: MORPHINE
     Indication: Product used for unknown indication
     Route: 065
     Dates: start: 20240101
  11. DEXCHLORPHENIRAMINE MALEATE [Concomitant]
     Active Substance: DEXCHLORPHENIRAMINE MALEATE
     Indication: Product used for unknown indication
     Route: 065
     Dates: start: 20240104
  12. Naloxone merck [Concomitant]
     Indication: Product used for unknown indication
     Route: 065
     Dates: start: 20240108, end: 20240114
  13. LIDOCAINE [Concomitant]
     Active Substance: LIDOCAINE
     Indication: Product used for unknown indication
     Route: 065
     Dates: start: 20240112
  14. MELATONIN [Concomitant]
     Active Substance: MELATONIN
     Indication: Product used for unknown indication
     Route: 065
     Dates: start: 20240103
  15. HYDROCORTISONE [Concomitant]
     Active Substance: HYDROCORTISONE
     Indication: Product used for unknown indication
     Route: 065
     Dates: start: 20231231, end: 20240115
  16. CIDOFOVIR [Concomitant]
     Active Substance: CIDOFOVIR
     Indication: Product used for unknown indication
     Route: 065
     Dates: start: 20240113
  17. FILGRASTIM [Concomitant]
     Active Substance: FILGRASTIM
     Indication: Product used for unknown indication
     Route: 065
     Dates: start: 20240106
  18. VANCOMYCIN [Concomitant]
     Active Substance: VANCOMYCIN
     Indication: Product used for unknown indication
     Route: 065
     Dates: start: 20240112, end: 20240114
  19. SPIRONOLACTONE [Concomitant]
     Active Substance: SPIRONOLACTONE
     Indication: Product used for unknown indication
     Route: 065
     Dates: start: 20240112

REACTIONS (3)
  - Drug interaction [None]
  - Drug interaction [None]
  - Seizure [None]

NARRATIVE: CASE EVENT DATE: 20240113
